FAERS Safety Report 5387023-3 (Version None)
Quarter: 2007Q3

REPORT INFORMATION
  Report Type: 
  Country: None (occurrence: None)
  Receive Date: 20070713
  Receipt Date: 20070702
  Transmission Date: 20080115
  Serious: Yes (Other)
  Sender: FDA-Public Use
  Company Number: AU-PFIZER INC-2007056399

PATIENT
  Sex: Female

DRUGS (4)
  1. ZELDOX (CAPSULES) [Suspect]
  2. CLOPIXOL (HYDROCHLORIDE) [Concomitant]
  3. VALPROATE SODIUM [Concomitant]
  4. ATENOLOL [Concomitant]

REACTIONS (2)
  - DIALYSIS [None]
  - SCHIZOPHRENIA [None]
